FAERS Safety Report 25332291 (Version 1)
Quarter: 2025Q2

REPORT INFORMATION
  Report Type: Spontaneous
  Country: US (occurrence: None)
  Receive Date: 20250519
  Receipt Date: 20250519
  Transmission Date: 20250716
  Serious: Yes (unspecified)
  Sender: FDA-CTU
  Company Number: None

PATIENT
  Age: 53 Year
  Sex: Male
  Weight: 81 kg

DRUGS (2)
  1. OPDIVO [Suspect]
     Active Substance: NIVOLUMAB
     Indication: Colon cancer
     Route: 042
     Dates: start: 20250502, end: 20250516
  2. OPDIVO [Suspect]
     Active Substance: NIVOLUMAB
     Indication: Hereditary non-polyposis colorectal cancer syndrome

REACTIONS (3)
  - Back pain [None]
  - Pelvic pain [None]
  - Dyspnoea [None]

NARRATIVE: CASE EVENT DATE: 20250516
